FAERS Safety Report 6702966-3 (Version None)
Quarter: 2010Q2

REPORT INFORMATION
  Report Type: 
  Country: None (occurrence: None)
  Receive Date: 20100429
  Receipt Date: 20100429
  Transmission Date: 20101027
  Serious: Yes (Other)
  Sender: FDA-Public Use
  Company Number: None

PATIENT
  Sex: Female
  Weight: 72.5755 kg

DRUGS (1)
  1. LOVAZA [Suspect]
     Indication: HYPERLIPIDAEMIA
     Dosage: 2 GRAM CAPSULES BID PO
     Route: 048
     Dates: start: 20100414, end: 20100424

REACTIONS (5)
  - ABDOMINAL DISCOMFORT [None]
  - DIARRHOEA [None]
  - DRUG INTERACTION [None]
  - FEAR [None]
  - HAEMATOCHEZIA [None]
